FAERS Safety Report 6355471-0 (Version None)
Quarter: 2009Q3

REPORT INFORMATION
  Report Type: 
  Country: None (occurrence: None)
  Receive Date: 20090914
  Receipt Date: 20090904
  Transmission Date: 20100115
  Serious: Yes (Other)
  Sender: FDA-Public Use
  Company Number: US-AMGEN-QUU363314

PATIENT
  Sex: Female

DRUGS (1)
  1. ENBREL [Suspect]
     Indication: PSORIASIS
     Route: 058
     Dates: start: 20090422

REACTIONS (5)
  - DYSPNOEA [None]
  - EYE PAIN [None]
  - FEELING HOT [None]
  - HEADACHE [None]
  - MUSCLE TWITCHING [None]
